FAERS Safety Report 7600250-7 (Version None)
Quarter: 2011Q3

REPORT INFORMATION
  Report Type: 
  Country: None (occurrence: None)
  Receive Date: 20110711
  Receipt Date: 20110706
  Transmission Date: 20111222
  Serious: Yes (Other)
  Sender: FDA-Public Use
  Company Number: FR-B.I. PHARMACEUTICALS,INC./RIDGEFIELD-2011-FF-00648FF

PATIENT
  Sex: Female
  Weight: 70 kg

DRUGS (7)
  1. PRADAXA [Suspect]
     Indication: THROMBOSIS PROPHYLAXIS
     Dosage: 220 MG
     Route: 048
     Dates: start: 20110513, end: 20110520
  2. ACETAMINOPHEN [Concomitant]
     Dosage: 4000 MG
     Route: 048
     Dates: start: 20110513
  3. RABEPRAZOLE SODIUM [Concomitant]
     Dosage: 20 MG
     Route: 048
     Dates: start: 20110515, end: 20110518
  4. ACUPAN [Concomitant]
     Dosage: ON DEMAND UP TO 80 MG/DAY
     Route: 042
  5. FORLAX [Concomitant]
     Dosage: 12 G
     Route: 048
     Dates: start: 20110515, end: 20110518
  6. ZOLPIDEM [Concomitant]
     Dosage: 10 MG
     Route: 048
  7. ONDANSETRON [Concomitant]
     Dosage: 12 MG
     Dates: start: 20110512, end: 20110512

REACTIONS (2)
  - DRUG INEFFECTIVE [None]
  - VENOUS THROMBOSIS [None]
